FAERS Safety Report 8838320 (Version 2)
Quarter: 2013Q3

REPORT INFORMATION
  Report Type: Spontaneous
  Country: US (occurrence: US)
  Receive Date: 20121012
  Receipt Date: 20130828
  Transmission Date: 20140515
  Serious: Yes (Hospitalization)
  Sender: FDA-Public Use
  Company Number: US-GLAXOSMITHKLINE-A0996693A

PATIENT
  Age: 48 Year
  Sex: Male

DRUGS (18)
  1. LOVAZA [Suspect]
     Indication: CARDIAC DISORDER
     Dosage: 2CAP TWICE PER DAY
     Route: 048
     Dates: start: 20101018
  2. LANOXIN [Concomitant]
  3. COREG [Concomitant]
  4. NEXIUM [Concomitant]
  5. ISOSORBIDE [Concomitant]
  6. CRESTOR [Concomitant]
  7. TEMAZEPAM [Concomitant]
  8. LISINOPRIL [Concomitant]
  9. METHADONE [Concomitant]
  10. FUROSEMIDE [Concomitant]
  11. LORTAB [Concomitant]
  12. VITAMIN D [Concomitant]
  13. VITAMIN C [Concomitant]
  14. MYCIN [Concomitant]
  15. IRON [Concomitant]
  16. POTASSIUM [Concomitant]
  17. ASPIRIN [Concomitant]
  18. INSULIN [Concomitant]

REACTIONS (2)
  - Cerebrovascular accident [Not Recovered/Not Resolved]
  - Speech disorder [Not Recovered/Not Resolved]
